FAERS Safety Report 25427634 (Version 1)
Quarter: 2025Q2

REPORT INFORMATION
  Report Type: Spontaneous
  Country: US (occurrence: US)
  Receive Date: 20250612
  Receipt Date: 20250612
  Transmission Date: 20250717
  Serious: No
  Sender: IPSEN BIOPHARMACEUTICALS, INC.
  Company Number: US-IPSEN Group, Research and Development-2025-13668

PATIENT
  Sex: Female

DRUGS (5)
  1. IQIRVO [Suspect]
     Active Substance: ELAFIBRANOR
     Indication: Primary biliary cholangitis
     Route: 048
  2. URSODIOL [Concomitant]
     Active Substance: URSODIOL
  3. METFORMIN HYDROCHLORIDE [Concomitant]
     Active Substance: METFORMIN HYDROCHLORIDE
     Dosage: METFORMIN ER GASTRIC 500 MG TABERGR24H
  4. PRAVASTATIN SODIUM [Concomitant]
     Active Substance: PRAVASTATIN SODIUM
  5. FISH OIL [Concomitant]
     Active Substance: FISH OIL

REACTIONS (1)
  - Chest pain [Unknown]
